FAERS Safety Report 7902292-0 (Version None)
Quarter: 2011Q4

REPORT INFORMATION
  Report Type: 
  Country: None (occurrence: None)
  Receive Date: 20111108
  Receipt Date: 20111101
  Transmission Date: 20120403
  Serious: Yes (Life-Threatening, Hospitalization, Disabling, Other)
  Sender: FDA-Public Use
  Company Number: CZ-ABBOTT-11P-217-0863815-00

PATIENT
  Sex: Female

DRUGS (3)
  1. ATORVASTATIN CALCIUM [Suspect]
     Indication: PRODUCT USED FOR UNKNOWN INDICATION
     Dates: start: 20100216, end: 20110830
  2. EZETIMIBE [Suspect]
     Indication: PRODUCT USED FOR UNKNOWN INDICATION
     Route: 048
     Dates: start: 20100216, end: 20110830
  3. FENOFIBRATE [Suspect]
     Indication: PRODUCT USED FOR UNKNOWN INDICATION
     Route: 048
     Dates: start: 20100216, end: 20110830

REACTIONS (8)
  - BLOOD CREATININE INCREASED [None]
  - DYSPEPSIA [None]
  - RENAL IMPAIRMENT [None]
  - BLOOD CREATINE ABNORMAL [None]
  - MYALGIA [None]
  - RHABDOMYOLYSIS [None]
  - ACIDOSIS [None]
  - DRUG INEFFECTIVE [None]
